FAERS Safety Report 7531646-X (Version None)
Quarter: 2011Q2

REPORT INFORMATION
  Report Type: 
  Country: None (occurrence: None)
  Receive Date: 20110608
  Receipt Date: 20110524
  Transmission Date: 20111010
  Serious: Yes (Hospitalization)
  Sender: FDA-Public Use
  Company Number: US-BAYER-2011-016035

PATIENT
  Age: 22 Year
  Sex: Female

DRUGS (18)
  1. CYMBALTA [Concomitant]
  2. PROLIXIN [Concomitant]
  3. ASCORBIC ACID [Concomitant]
  4. WELLBUTRIN [Concomitant]
  5. LITHIUM CARBONATE [Concomitant]
  6. HALDOL [Concomitant]
  7. TOPAMAX [Concomitant]
  8. METFORMIN HCL [Concomitant]
  9. CLONAZEPAM [Concomitant]
  10. YAZ [Suspect]
     Indication: ACNE
     Dosage: UNK
     Dates: start: 20090101
  11. LISINOPRIL [Concomitant]
  12. GEODON [Concomitant]
  13. ZOCOR [Concomitant]
  14. ALBUTEROL SULFATE AUTOHALER [Concomitant]
  15. ARIXTRA [Concomitant]
     Dosage: UNK
     Dates: start: 20090301
  16. ANTIBIOTICS [Concomitant]
  17. METOPROLOL SUCCINATE [Concomitant]
  18. ZYPREXA [Concomitant]

REACTIONS (3)
  - PULMONARY EMBOLISM [None]
  - PAIN [None]
  - INJURY [None]
